FAERS Safety Report 7487985-4 (Version None)
Quarter: 2011Q2

REPORT INFORMATION
  Report Type: 
  Country: None (occurrence: None)
  Receive Date: 20110518
  Receipt Date: 20110512
  Transmission Date: 20111010
  Serious: No
  Sender: FDA-Public Use
  Company Number: US-PFIZER INC-2011078411

PATIENT
  Sex: Female
  Weight: 68.027 kg

DRUGS (17)
  1. MINOCYCLINE [Concomitant]
     Indication: ACNE
     Dosage: 50 MG, UNK
  2. TOVIAZ [Suspect]
     Indication: URINARY RETENTION
     Dosage: 4 MG, UNK
     Dates: start: 20110301
  3. MULTI-VITAMINS [Concomitant]
     Dosage: UNK
  4. MAGNESIUM [Concomitant]
     Dosage: UNK
  5. CALCIUM WITH VITAMIN D [Concomitant]
     Dosage: UNK
  6. MOBIC [Concomitant]
     Indication: BURSITIS
     Dosage: 7.5 MG, DAILY
  7. FLEXERIL [Concomitant]
     Dosage: UNK
  8. KLONOPIN [Concomitant]
     Indication: INSOMNIA
     Dosage: 1.5 MG, UNK
  9. SKELAXIN [Concomitant]
     Dosage: 800 MG, DAILY
  10. MINERAL TAB [Concomitant]
     Dosage: UNK
  11. VITAMIN C [Concomitant]
     Dosage: 1000 MG, DAILY
  12. TOVIAZ [Suspect]
     Indication: ENURESIS
  13. TOVIAZ [Suspect]
     Indication: MICTURITION URGENCY
  14. PREMARIN [Concomitant]
     Dosage: 625 MG, UNK
  15. CLARINEX [Concomitant]
     Dosage: 5 MG, UNK
  16. TRAZODONE [Concomitant]
     Indication: SLEEP DISORDER
     Dosage: 50 MG, UNK
  17. ACETYLSALICYLIC ACID [Concomitant]
     Dosage: 81 MG, UNK

REACTIONS (1)
  - RASH [None]
